FAERS Safety Report 16840324 (Version 1)
Quarter: 2019Q3

REPORT INFORMATION
  Report Type: Spontaneous
  Country: BE (occurrence: BE)
  Receive Date: 20190923
  Receipt Date: 20190923
  Transmission Date: 20191005
  Serious: Yes (Hospitalization)
  Sender: FDA-Public Use
  Company Number: PHHY2019BE218517

PATIENT
  Age: 78 Year
  Sex: Male

DRUGS (4)
  1. FOLINIC ACID [Suspect]
     Active Substance: LEUCOVORIN
     Indication: COLORECTAL CANCER METASTATIC
     Dosage: 1 OT, Q2W
     Route: 042
     Dates: start: 20170315
  2. BEVACIZUMAB. [Suspect]
     Active Substance: BEVACIZUMAB
     Indication: COLORECTAL CANCER METASTATIC
     Dosage: 1 OT, Q2W (DATE OF MOST RECENT DOSE (385 MG) ADMINISTERED PRIOR TO AE ONSET: 26 APR 2017)
     Route: 042
     Dates: start: 20170315
  3. 5-FLUOROURACIL [Suspect]
     Active Substance: FLUOROURACIL
     Indication: COLORECTAL CANCER METASTATIC
     Dosage: 1 OT, Q2W (DATE OF MOST RECENT DOSE (2852 MG) ADMINISTERED PRIOR TO AE ONSET: 15 MAR 2017)
     Route: 042
     Dates: start: 20170315
  4. OXALIPLATIN. [Suspect]
     Active Substance: OXALIPLATIN
     Indication: COLORECTAL CANCER METASTATIC
     Dosage: 1 OT, Q2W (DATE OF MOST RECENT DOSE (101 MG) ADMINISTERED PRIOR TO AE ONSET: 15 MAR 2017
     Route: 042
     Dates: start: 20170315

REACTIONS (4)
  - Dry mouth [Not Recovered/Not Resolved]
  - Pyrexia [Recovered/Resolved]
  - Malignant pleural effusion [Not Recovered/Not Resolved]
  - Acute coronary syndrome [Recovered/Resolved]

NARRATIVE: CASE EVENT DATE: 20170326
